FAERS Safety Report 14974770 (Version 1)
Quarter: 2018Q2

REPORT INFORMATION
  Report Type: Spontaneous
  Country: US (occurrence: US)
  Receive Date: 20180514
  Receipt Date: 20180514
  Transmission Date: 20180711
  Serious: Yes (Hospitalization)
  Sender: FDA-Public Use
  Company Number: None

PATIENT
  Age: 63 Year
  Sex: Female
  Weight: 61.69 kg

DRUGS (13)
  1. FENTANYL. [Concomitant]
     Active Substance: FENTANYL
  2. OXYBUTYNIN. [Concomitant]
     Active Substance: OXYBUTYNIN CHLORIDE
  3. CAPECITABINE 500 MG [Suspect]
     Active Substance: CAPECITABINE
     Indication: COLON CANCER
     Route: 048
     Dates: start: 20180311
  4. PROTONIX [Concomitant]
     Active Substance: PANTOPRAZOLE SODIUM
  5. SERTRALINE [Concomitant]
     Active Substance: SERTRALINE HYDROCHLORIDE
  6. SUDAFED [Concomitant]
     Active Substance: PSEUDOEPHEDRINE HYDROCHLORIDE
  7. ONDANSETRON [Concomitant]
     Active Substance: ONDANSETRON
  8. LORAZEPAM. [Concomitant]
     Active Substance: LORAZEPAM
  9. IBUPROFEN. [Concomitant]
     Active Substance: IBUPROFEN
  10. FAMOTIDINE. [Concomitant]
     Active Substance: FAMOTIDINE
  11. HYDROMORPHONE [Concomitant]
     Active Substance: HYDROMORPHONE
  12. LOVENOX [Concomitant]
     Active Substance: ENOXAPARIN SODIUM
  13. MULTIVITAMINS [Concomitant]
     Active Substance: VITAMINS

REACTIONS (1)
  - Foot operation [None]

NARRATIVE: CASE EVENT DATE: 20180202
